FAERS Safety Report 4397032-9 (Version None)
Quarter: 2004Q3

REPORT INFORMATION
  Report Type: 
  Country: None (occurrence: None)
  Receive Date: 20040714
  Receipt Date: 20040706
  Transmission Date: 20050211
  Serious: Yes (Hospitalization, Other)
  Sender: FDA-Public Use
  Company Number: PHBS2004US09239

PATIENT
  Age: 49 Year
  Sex: Male
  Weight: 93 kg

DRUGS (4)
  1. CYCLOSPORINE [Suspect]
     Indication: HEART TRANSPLANT
     Route: 065
  2. WARFARIN SODIUM [Concomitant]
     Indication: ATRIAL FLUTTER
  3. ENOXAPARIN SODIUM [Suspect]
     Indication: ATRIAL FLUTTER
     Dosage: 80 MG, BID
     Route: 058
  4. ASPIRIN [Concomitant]

REACTIONS (9)
  - ATRIAL FLUTTER [None]
  - BLOOD CREATININE INCREASED [None]
  - HAEMATOMA [None]
  - HYPOTENSION [None]
  - NEPHROPATHY TOXIC [None]
  - OEDEMA PERIPHERAL [None]
  - PAIN IN EXTREMITY [None]
  - RADIOFREQUENCY ABLATION [None]
  - RENAL FAILURE CHRONIC [None]
